FAERS Safety Report 6687660-X (Version None)
Quarter: 2010Q2

REPORT INFORMATION
  Report Type: 
  Country: None (occurrence: None)
  Receive Date: 20100415
  Receipt Date: 20100331
  Transmission Date: 20101027
  Serious: Yes (Congenital Anomaly)
  Sender: FDA-Public Use
  Company Number: AUR-APL-2010-00933

PATIENT

DRUGS (3)
  1. GABAPENTIN [Suspect]
     Indication: EPILEPSY
     Dosage: 1200MG, BID, TRANSPLACENTAL
     Route: 064
  2. LAMOTRIGINE [Suspect]
     Indication: EPILEPSY
     Dosage: 400MG, BID, TRANSPLACENTAL
     Route: 064
  3. KEPPRA [Suspect]
     Indication: EPILEPSY
     Dosage: 2G-BID-TRANSPLACENTAL
     Route: 064

REACTIONS (3)
  - CONGENITAL ANOMALY [None]
  - MATERNAL DRUGS AFFECTING FOETUS [None]
  - TALIPES [None]
